FAERS Safety Report 7506312-7 (Version None)
Quarter: 2011Q2

REPORT INFORMATION
  Report Type: 
  Country: None (occurrence: None)
  Receive Date: 20110526
  Receipt Date: 20110506
  Transmission Date: 20111010
  Serious: No
  Sender: FDA-Public Use
  Company Number: US-ABBOTT-11P-163-0724020-00

PATIENT
  Sex: Female
  Weight: 93.524 kg

DRUGS (12)
  1. FEXOFENADINE [Concomitant]
     Indication: HYPERSENSITIVITY
  2. OMEPRAZOLE [Concomitant]
     Indication: GASTROOESOPHAGEAL REFLUX DISEASE
  3. ZEMPLAR [Suspect]
     Indication: NEPHROPATHY
     Route: 048
  4. AMLODIPINE [Concomitant]
     Indication: HYPERTENSION
  5. ZENLAFAXINE [Concomitant]
     Indication: DEPRESSION
  6. METFORMIN HCL [Concomitant]
     Indication: DIABETES MELLITUS
     Route: 048
  7. METOPROLOL TARTRATE [Concomitant]
     Indication: HYPERTENSION
  8. ZOLPIDEM [Concomitant]
     Indication: INSOMNIA
  9. ABILIFY [Concomitant]
     Indication: DEPRESSION
  10. SIMVASTATIN [Suspect]
     Indication: BLOOD CHOLESTEROL INCREASED
     Dates: end: 20110415
  11. GLYBURIDE [Concomitant]
     Indication: DIABETES MELLITUS
     Route: 048
  12. LISINOPRIL [Concomitant]
     Indication: HYPERTENSION

REACTIONS (1)
  - BACK PAIN [None]
